FAERS Safety Report 17605297 (Version 2)
Quarter: 2020Q4

REPORT INFORMATION
  Report Type: Spontaneous
  Country: US (occurrence: US)
  Receive Date: 20200331
  Receipt Date: 20201007
  Transmission Date: 20210113
  Serious: No
  Sender: FDA-Public Use
  Company Number: US-GLAXOSMITHKLINE-US2020052381

PATIENT
  Sex: Female
  Weight: 45 kg

DRUGS (2)
  1. ZEJULA [Suspect]
     Active Substance: NIRAPARIB
     Dosage: 100 MG
  2. ZEJULA [Suspect]
     Active Substance: NIRAPARIB
     Indication: OVARIAN CANCER
     Dosage: 200 MG, QD
     Dates: start: 201907

REACTIONS (6)
  - Vision blurred [Unknown]
  - Prescribed underdose [Unknown]
  - Eye irritation [Unknown]
  - Visual impairment [Unknown]
  - Myopia [Unknown]
  - Thermal burn [Unknown]
